FAERS Safety Report 5204535-3 (Version None)
Quarter: 2007Q1

REPORT INFORMATION
  Report Type: 
  Country: None (occurrence: None)
  Receive Date: 20070110
  Receipt Date: 20060501
  Transmission Date: 20070707
  Serious: No
  Sender: FDA-Public Use
  Company Number: US-BRISTOL-MYERS SQUIBB COMPANY-13363239

PATIENT
  Age: 21 Year
  Sex: Male
  Weight: 104 kg

DRUGS (2)
  1. ABILIFY [Suspect]
     Indication: HYPNAGOGIC HALLUCINATION
  2. AMBIEN [Concomitant]

REACTIONS (1)
  - SOMNOLENCE [None]
